FAERS Safety Report 5100132-9 (Version None)
Quarter: 2006Q3

REPORT INFORMATION
  Report Type: 
  Country: None (occurrence: None)
  Receive Date: 20060731
  Receipt Date: 20060320
  Transmission Date: 20061208
  Serious: Yes (Other)
  Sender: FDA-Public Use
  Company Number: US-JNJFOC-20040908136

PATIENT
  Age: 42 Year
  Sex: Female
  Weight: 77.1115 kg

DRUGS (5)
  1. RISPERDAL [Suspect]
     Indication: SCHIZOPHRENIA
     Dosage: 1 MG , 2 IN 1 DAY, ORAL
     Route: 048
     Dates: start: 19971125
  2. INSULIN RECOMBINANT HUMAN/INSULIN SUSPENSION ISOPHANE RECOMBINANT70/30 [Concomitant]
  3. NPH INSULIN [Concomitant]
  4. GLIPIZIDE [Concomitant]
  5. ZIPRASIDONE HYDROCHLORIDE (ZIPRASIDONE HYDROCHLORIDE) [Concomitant]

REACTIONS (9)
  - ALOPECIA [None]
  - DELUSION [None]
  - DIABETES MELLITUS [None]
  - DIABETIC KETOACIDOSIS [None]
  - HALLUCINATION, AUDITORY [None]
  - HYPERGLYCAEMIA [None]
  - PAIN [None]
  - SKIN DISORDER [None]
  - WEIGHT INCREASED [None]
